FAERS Safety Report 25600584 (Version 3)
Quarter: 2025Q3

REPORT INFORMATION
  Report Type: Spontaneous
  Country: CL (occurrence: CL)
  Receive Date: 20250724
  Receipt Date: 20250820
  Transmission Date: 20251020
  Serious: Yes (Other)
  Sender: NOVARTIS
  Company Number: CL-002147023-NVSC2025CL116831

PATIENT
  Age: 20 Year
  Sex: Female

DRUGS (2)
  1. CYCLOSPORINE [Suspect]
     Active Substance: CYCLOSPORINE
     Indication: Chronic spontaneous urticaria
     Dosage: 200 MG, QD (TABLET)
     Route: 048
  2. BILASTINE [Concomitant]
     Active Substance: BILASTINE
     Indication: Chronic spontaneous urticaria
     Dosage: UNK, Q12H (2 X 20MG)
     Route: 065

REACTIONS (5)
  - Angioedema [Unknown]
  - Immunosuppression [Unknown]
  - Urticaria chronic [Unknown]
  - Drug ineffective [Unknown]
  - Product use in unapproved indication [Unknown]
